FAERS Safety Report 4383436-7 (Version None)
Quarter: 2004Q2

REPORT INFORMATION
  Report Type: 
  Country: None (occurrence: None)
  Receive Date: 20040618
  Receipt Date: 20040609
  Transmission Date: 20050107
  Serious: Yes (Hospitalization)
  Sender: FDA-Public Use
  Company Number: STA-AE-04-MTX-258

PATIENT
  Age: 53 Year
  Sex: Male

DRUGS (26)
  1. RHEUMATREX [Suspect]
     Indication: RHEUMATOID ARTHRITIS
     Dosage: 12 MG 1 X PER 1 WK, ORAL
     Route: 048
     Dates: start: 20000601, end: 20021001
  2. RHEUMATREX [Suspect]
     Indication: RHEUMATOID ARTHRITIS
     Dosage: 8 MG 1 X PER 1 WK, ORAL
     Route: 048
     Dates: start: 20021001, end: 20030219
  3. RHEUMATREX [Suspect]
     Indication: RHEUMATOID ARTHRITIS
     Dosage: 4 MG 1 X PER 1 WK, ORAL
     Route: 048
     Dates: start: 20030730, end: 20030812
  4. RHEUMATREX [Suspect]
     Indication: RHEUMATOID ARTHRITIS
     Dosage: 6 MG 1 X PER 1 WK, ORAL
     Route: 048
     Dates: start: 20030813, end: 20030913
  5. RHEUMATREX [Suspect]
     Indication: RHEUMATOID ARTHRITIS
     Dosage: 8 MG, 1 X PER 1 WK, ORAL
     Route: 048
     Dates: start: 20030914, end: 20031025
  6. ISONIAZID [Suspect]
     Indication: TUBERCULOSIS PROPHYLAXIS
     Dosage: 400 MG 1 X PER 1 DAY, ORAL
     Route: 048
     Dates: start: 20030910, end: 20031008
  7. MOBIC [Suspect]
     Indication: RHEUMATOID ARTHRITIS
     Dosage: 10 MG 1 X PER DAY, ORAL
     Route: 048
     Dates: end: 20030903
  8. PREDNISOLONE [Suspect]
     Indication: RHEUMATOID ARTHRITIS
     Dosage: 15 MG 1 X PER 1 DAY, ORAL
     Route: 048
     Dates: end: 20031028
  9. PREDNISOLONE [Suspect]
     Indication: RHEUMATOID ARTHRITIS
     Dosage: 15 MG 1 X PER 1 DAY, ORAL
     Route: 048
     Dates: start: 20031104
  10. PREDNISOLONE [Suspect]
     Indication: RHEUMATOID ARTHRITIS
     Dosage: 25 MG 1 X PER 1 DAY, ORAL
     Route: 048
     Dates: start: 20031029, end: 20031103
  11. REMICADE [Suspect]
     Indication: RHEUMATOID ARTHRITIS
     Dosage: 3 MG/KG 1  PER 1 DAY, INTRAVENOUS
     Route: 042
     Dates: start: 20030820, end: 20030820
  12. REMICADE [Suspect]
     Indication: RHEUMATOID ARTHRITIS
     Dosage: 3 MG/KG 1 X PER 1 DAY, INTRAVENOUS
     Route: 042
     Dates: start: 20030903, end: 20030903
  13. REMICADE [Suspect]
     Indication: RHEUMATOID ARTHRITIS
     Dosage: 3 MG/KG 1 X PER 1 DAY, INTRAVENOUS
     Route: 042
     Dates: start: 20031001, end: 20031001
  14. REMICADE [Suspect]
     Indication: RHEUMATOID ARTHRITIS
     Dosage: 3 MG/KG 1 X PER 1 DAY, INTRAVENOUS
     Route: 042
     Dates: start: 20040213, end: 20040213
  15. PYDOXAL (PYRIDOXAL PHOSPHATE) [Concomitant]
  16. PYDOXAL (PYRIDOXAL PHOSPHATE) [Concomitant]
  17. ACTONEL [Concomitant]
  18. SELBEX (TEPRENONE) [Concomitant]
  19. MENATETRENONE  ( MENATETRENONE) [Concomitant]
  20. PROMAC (POLAPEZINC) [Concomitant]
  21. MAGNESIUM OXYDE (MAGNESIUM OXIDE) [Concomitant]
  22. FOLIAMIN (FOLIC ACID) [Concomitant]
  23. SEREVENT [Concomitant]
  24. ASVERIN (TIPEPIDINE HIBENZATE) [Concomitant]
  25. NORVASC [Concomitant]
  26. OMEPRAZOLE [Concomitant]

REACTIONS (5)
  - CELL-MEDIATED IMMUNE DEFICIENCY [None]
  - COUGH [None]
  - DYSPNOEA [None]
  - HERPES ZOSTER [None]
  - PHARYNGOLARYNGEAL PAIN [None]
